FAERS Safety Report 10531505 (Version 1)
Quarter: 2014Q4

REPORT INFORMATION
  Report Type: Spontaneous
  Country: FR (occurrence: FR)
  Receive Date: 20141021
  Receipt Date: 20141021
  Transmission Date: 20150529
  Serious: Yes (Hospitalization)
  Sender: FDA-Public Use
  Company Number: PHHY2014FR136348

PATIENT
  Age: 86 Year
  Sex: Male

DRUGS (3)
  1. VOLTARENE [Suspect]
     Active Substance: DICLOFENAC SODIUM
     Indication: SCIATICA
     Dosage: 200 MG, UNK
     Route: 048
     Dates: start: 20140824, end: 20140830
  2. MONO TILDIEM [Concomitant]
     Active Substance: DILTIAZEM HYDROCHLORIDE
     Indication: PRODUCT USED FOR UNKNOWN INDICATION
     Dosage: 200 MG, UNK
     Route: 048
  3. PROFENID [Suspect]
     Active Substance: KETOPROFEN
     Indication: SCIATICA
     Dosage: UNK UKN, UNK
     Route: 030
     Dates: start: 20140826, end: 20140828

REACTIONS (1)
  - Acquired haemophilia with anti FVIII, XI, or XIII [Not Recovered/Not Resolved]

NARRATIVE: CASE EVENT DATE: 20140829
